FAERS Safety Report 8510121-X (Version None)
Quarter: 2012Q3

REPORT INFORMATION
  Report Type: 
  Country: None (occurrence: None)
  Receive Date: 20120713
  Receipt Date: 20120709
  Transmission Date: 20120928
  Serious: Yes (Other)
  Sender: FDA-Public Use
  Company Number: GR-ABBOTT-12P-066-0954341-00

PATIENT
  Age: 48 Year
  Sex: Male

DRUGS (3)
  1. ACITRETIN [Concomitant]
     Indication: PSORIASIS
  2. NEORAL [Concomitant]
     Indication: PSORIASIS
  3. HUMIRA [Suspect]
     Indication: PSORIASIS

REACTIONS (2)
  - COUGH [None]
  - LUNG NEOPLASM MALIGNANT [None]
